FAERS Safety Report 6318015-5 (Version None)
Quarter: 2009Q3

REPORT INFORMATION
  Report Type: 
  Country: None (occurrence: None)
  Receive Date: 20090821
  Receipt Date: 20090810
  Transmission Date: 20100115
  Serious: No
  Sender: FDA-Public Use
  Company Number: B0588816A

PATIENT
  Age: 31 Year
  Sex: Female

DRUGS (3)
  1. RELENZA [Suspect]
     Indication: DRUG USE FOR UNKNOWN INDICATION
     Dosage: 5MG TWICE PER DAY
     Route: 065
     Dates: start: 20090716, end: 20090717
  2. OMEPRAZOLE [Concomitant]
  3. FERROUS SULFATE TAB [Concomitant]

REACTIONS (2)
  - DRUG EXPOSURE DURING PREGNANCY [None]
  - RASH PRURITIC [None]
